FAERS Safety Report 6267750-6 (Version None)
Quarter: 2009Q3

REPORT INFORMATION
  Report Type: 
  Country: None (occurrence: None)
  Receive Date: 20090714
  Receipt Date: 20090702
  Transmission Date: 20100115
  Serious: Yes (Hospitalization)
  Sender: FDA-Public Use
  Company Number: DE-ROCHE-638534

PATIENT
  Sex: Male
  Weight: 105 kg

DRUGS (3)
  1. INTERFERON ALFA-2A [Suspect]
     Route: 065
     Dates: start: 20070420
  2. INTERFERON ALFA-2A [Suspect]
     Dosage: LAST DOSE PRIOR TO SAE:18 MARCH 2009.PATIENT WITHDRAWN FROM STUDY
     Route: 065
     Dates: start: 20080401
  3. PARACETAMOL [Concomitant]

REACTIONS (1)
  - ACUTE MYELOID LEUKAEMIA [None]
